FAERS Safety Report 7812763-3 (Version None)
Quarter: 2011Q4

REPORT INFORMATION
  Report Type: 
  Country: None (occurrence: None)
  Receive Date: 20111011
  Receipt Date: 20110928
  Transmission Date: 20120403
  Serious: Yes (Other)
  Sender: FDA-Public Use
  Company Number: 2011AT000191

PATIENT
  Age: 65 Year
  Sex: Male

DRUGS (1)
  1. EDEX [Suspect]
     Indication: ERECTILE DYSFUNCTION
     Dosage: 10 UG;BIW;ICAN
     Dates: start: 20090101, end: 20110301

REACTIONS (7)
  - NAUSEA [None]
  - VERTIGO [None]
  - VOMITING [None]
  - PERINEAL PAIN [None]
  - DIZZINESS [None]
  - BURNING SENSATION [None]
  - PROCTALGIA [None]
